FAERS Safety Report 9868024 (Version 3)
Quarter: 2014Q1

REPORT INFORMATION
  Report Type: Report from Study
  Country: US (occurrence: US)
  Receive Date: 20140204
  Receipt Date: 20140228
  Transmission Date: 20141002
  Serious: Yes (Hospitalization)
  Sender: FDA-Public Use
  Company Number: US-PFIZER INC-2014028505

PATIENT
  Sex: Male
  Weight: .77 kg

DRUGS (8)
  1. BLINDED NICOTINE [Suspect]
     Indication: SMOKING CESSATION THERAPY
     Dosage: BLINDED THERAPY:10MG CARTRIDGE; 4-12 CARTRIDGES PER DAY, ROUTE: INHALATION
     Route: 064
     Dates: start: 20131119, end: 20131230
  2. BLINDED NICOTINE [Suspect]
     Indication: SMOKING CESSATION THERAPY
     Dosage: BLINDED THERAPY:10MG CARTRIDGE; 4-12 CARTRIDGES PER DAY, ROUTE: INHALATION
     Route: 064
     Dates: start: 20131119, end: 20131230
  3. BLINDED PLACEBO [Suspect]
     Indication: SMOKING CESSATION THERAPY
     Dosage: BLINDED THERAPY:10MG CARTRIDGE; 4-12 CARTRIDGES PER DAY, ROUTE: INHALATION
     Route: 064
     Dates: start: 20131119, end: 20131230
  4. BLINDED PLACEBO [Suspect]
     Indication: SMOKING CESSATION THERAPY
     Dosage: BLINDED THERAPY:10MG CARTRIDGE; 4-12 CARTRIDGES PER DAY, ROUTE: INHALATION
     Route: 064
     Dates: start: 20131119, end: 20131230
  5. ZOLOFT [Suspect]
     Indication: DEPRESSION
     Dosage: 50 MG, 1X/DAY
     Route: 064
  6. XANAX [Suspect]
     Indication: ANXIETY
     Dosage: 2 MG, 2X/DAY
     Route: 064
     Dates: start: 201311
  7. METHADONE [Concomitant]
     Indication: SUBSTANCE ABUSE
     Dosage: UNK
     Route: 048
     Dates: start: 20130103
  8. PRENATAL VITAMINS [Concomitant]
     Indication: SUPPLEMENTATION THERAPY
     Dosage: UNK
     Route: 048
     Dates: start: 2013

REACTIONS (3)
  - Maternal exposure during pregnancy [Recovered/Resolved]
  - Premature baby [Recovered/Resolved]
  - Low birth weight baby [Not Recovered/Not Resolved]
